FAERS Safety Report 24918064 (Version 1)
Quarter: 2025Q1

REPORT INFORMATION
  Report Type: Spontaneous
  Country: US (occurrence: US)
  Receive Date: 20250203
  Receipt Date: 20250203
  Transmission Date: 20250408
  Serious: No
  Sender: INCYTE
  Company Number: US-EVENT-001331

PATIENT

DRUGS (4)
  1. OPZELURA [Suspect]
     Active Substance: RUXOLITINIB PHOSPHATE
     Indication: Rash
     Dosage: BID
     Route: 061
     Dates: start: 202411
  2. AMZEEQ [Concomitant]
     Active Substance: MINOCYCLINE HYDROCHLORIDE
     Indication: Rash
     Route: 061
  3. ORACEA [DOXYCYCLINE HYCLATE] [Concomitant]
     Indication: Eczema
     Route: 065
  4. ORACEA [DOXYCYCLINE HYCLATE] [Concomitant]
     Indication: Dermatitis

REACTIONS (5)
  - Blood cholesterol increased [Unknown]
  - Pruritus [Unknown]
  - Product distribution issue [Unknown]
  - Viral infection [Not Recovered/Not Resolved]
  - Drug ineffective [Unknown]

NARRATIVE: CASE EVENT DATE: 20241231
